FAERS Safety Report 5224739-3 (Version None)
Quarter: 2007Q1

REPORT INFORMATION
  Report Type: 
  Country: None (occurrence: None)
  Receive Date: 20070129
  Receipt Date: 20070129
  Transmission Date: 20070707
  Serious: Yes (Hospitalization)
  Sender: FDA-Public Use
  Company Number: None

PATIENT
  Age: 36 Year
  Sex: Male
  Weight: 79.3795 kg

DRUGS (1)
  1. TRAMADOL HCL [Suspect]
     Indication: PAIN
     Dosage: 50 MG. EVERY 6 HOURS PO
     Route: 048
     Dates: start: 20070106, end: 20070116

REACTIONS (4)
  - FALL [None]
  - GRAND MAL CONVULSION [None]
  - SCREAMING [None]
  - TONGUE BITING [None]
